FAERS Safety Report 16526061 (Version 1)
Quarter: 2019Q3

REPORT INFORMATION
  Report Type: Spontaneous
  Country: GB (occurrence: GB)
  Receive Date: 20190703
  Receipt Date: 20190703
  Transmission Date: 20191004
  Serious: Yes (Other)
  Sender: FDA-Public Use
  Company Number: GB-ALKEM LABORATORIES LIMITED-GB-ALKEM-2019-05989

PATIENT
  Age: 73 Year
  Sex: Female

DRUGS (1)
  1. CEFUROXIME AXETIL. [Suspect]
     Active Substance: CEFUROXIME AXETIL
     Indication: PRODUCT USED FOR UNKNOWN INDICATION
     Dosage: SINGLE 12.5 MG/0.1 ML INTRACAMERAL INJECTION

REACTIONS (4)
  - Maculopathy [Unknown]
  - Retinoschisis [Unknown]
  - Incorrect dose administered [Unknown]
  - Product preparation issue [Unknown]
